FAERS Safety Report 19865687 (Version 1)
Quarter: 2021Q3

REPORT INFORMATION
  Report Type: Spontaneous
  Country: US (occurrence: US)
  Receive Date: 20210921
  Receipt Date: 20210921
  Transmission Date: 20211014
  Serious: Yes (Hospitalization)
  Sender: FDA-Public Use
  Company Number: US-PARI RESPIRATORY EQUIPMENT, INC.-2021PAR00047

PATIENT
  Age: 58 Year
  Sex: Female

DRUGS (2)
  1. NUCALA [Concomitant]
     Active Substance: MEPOLIZUMAB
  2. KITABIS PAK [Suspect]
     Active Substance: TOBRAMYCIN
     Indication: CYSTIC FIBROSIS
     Dosage: 1 AMPULE (300 MG), VIA NEBULIZER 2X/DAY FOR 28 DAYS ON AND 28 DAYS OFF
     Dates: start: 201912

REACTIONS (2)
  - Pneumonia [Unknown]
  - COVID-19 [Unknown]

NARRATIVE: CASE EVENT DATE: 20210825
